FAERS Safety Report 4802619-2 (Version None)
Quarter: 2005Q4

REPORT INFORMATION
  Report Type: 
  Country: None (occurrence: None)
  Receive Date: 20051014
  Receipt Date: 20050509
  Transmission Date: 20060501
  Serious: Yes (Other)
  Sender: FDA-Public Use
  Company Number: 2005046693

PATIENT
  Age: 45 Year
  Sex: Male
  Weight: 90.7194 kg

DRUGS (2)
  1. NEURONTIN [Suspect]
     Indication: CONVULSION
     Dosage: 3000 MG (1 IN 1 D) ORAL
     Route: 048
  2. LAMICTAL [Suspect]
     Indication: BIPOLAR DISORDER
     Dosage: 50 MG (1 IN 1 D)
     Dates: start: 20050104, end: 20050201

REACTIONS (7)
  - BIPOLAR DISORDER [None]
  - BLISTER [None]
  - CONVULSION [None]
  - ERYTHEMA [None]
  - PYREXIA [None]
  - RASH [None]
  - SWELLING FACE [None]
